FAERS Safety Report 4895947-6 (Version None)
Quarter: 2006Q1

REPORT INFORMATION
  Report Type: 
  Country: None (occurrence: None)
  Receive Date: 20060125
  Receipt Date: 20060117
  Transmission Date: 20060701
  Serious: Yes (Death, Congenital Anomaly)
  Sender: FDA-Public Use
  Company Number: 2005138929

PATIENT

DRUGS (5)
  1. DOSTINEX [Suspect]
     Indication: HYPERPROLACTINAEMIA
     Dosage: 0.5  (0.5 MG, WEEKLY),
     Dates: start: 20050606, end: 20050608
  2. LEVOTHYROXINE SODIUM [Concomitant]
  3. PROGESTERONE [Concomitant]
  4. VITAMINS WITH MINERALS (VITAMINS WITH MINERALS) [Concomitant]
  5. ACETAMINOPHEN [Concomitant]

REACTIONS (4)
  - ABORTION INDUCED [None]
  - DRUG EXPOSURE DURING PREGNANCY [None]
  - HEADACHE [None]
  - HYPOMENORRHOEA [None]
